FAERS Safety Report 4874040-2 (Version None)
Quarter: 2006Q1

REPORT INFORMATION
  Report Type: 
  Country: None (occurrence: None)
  Receive Date: 20060104
  Receipt Date: 20051219
  Transmission Date: 20060701
  Serious: Yes (Other)
  Sender: FDA-Public Use
  Company Number: 2005172437

PATIENT
  Sex: Female

DRUGS (1)
  1. NEURONTIN [Suspect]
     Indication: BIPOLAR DISORDER
     Dosage: 1500 MG
     Dates: start: 19980101

REACTIONS (6)
  - CYSTITIS [None]
  - DRUG EXPOSURE DURING PREGNANCY [None]
  - FOOT DEFORMITY [None]
  - INTESTINAL FUNCTIONAL DISORDER [None]
  - LAZINESS [None]
  - NEONATAL RESPIRATORY ARREST [None]
